FAERS Safety Report 6676094-X (Version None)
Quarter: 2010Q2

REPORT INFORMATION
  Report Type: 
  Country: None (occurrence: None)
  Receive Date: 20100412
  Receipt Date: 20100331
  Transmission Date: 20101027
  Serious: Yes (Other)
  Sender: FDA-Public Use
  Company Number: US-PFIZER INC-2010042084

PATIENT
  Sex: Male
  Weight: 97.052 kg

DRUGS (7)
  1. LIPITOR [Suspect]
     Indication: BLOOD CHOLESTEROL INCREASED
     Dosage: UNK
     Route: 048
  2. ZETIA [Suspect]
     Indication: BLOOD CHOLESTEROL INCREASED
     Dosage: 10 MG, DAILY
     Route: 048
  3. AVANDIA [Suspect]
     Indication: DIABETES MELLITUS
     Route: 048
  4. ACETYLSALICYLIC ACID [Concomitant]
     Indication: CARDIAC DISORDER
     Dosage: 5 MG, DAILY
     Route: 048
  5. GLUCOVANCE [Concomitant]
     Indication: DIABETES MELLITUS
     Dosage: UNK
     Route: 048
  6. PRILOSEC [Concomitant]
     Indication: DYSPEPSIA
     Dosage: UNK MG, UNK
     Route: 048
  7. SITAGLIPTIN PHOSPHATE [Concomitant]
     Indication: DIABETES MELLITUS
     Dosage: UNK
     Route: 048

REACTIONS (7)
  - ALOPECIA [None]
  - ARTERIAL REPAIR [None]
  - ASTHENIA [None]
  - CORONARY ARTERY BYPASS [None]
  - JOINT STIFFNESS [None]
  - OEDEMA PERIPHERAL [None]
  - STENT PLACEMENT [None]
